FAERS Safety Report 15254518 (Version 1)
Quarter: 2018Q3

REPORT INFORMATION
  Report Type: Spontaneous
  Country: US (occurrence: US)
  Receive Date: 20180717
  Receipt Date: 20180717
  Transmission Date: 20181010
  Serious: Yes (Hospitalization)
  Sender: FDA-Public Use
  Company Number: None

PATIENT
  Age: 54 Year
  Sex: Female
  Weight: 58.51 kg

DRUGS (9)
  1. OXYCODONE [Concomitant]
     Active Substance: OXYCODONE
  2. METHYLPHENIDATE 5 MG, BID [Concomitant]
  3. LACTULOSE. [Concomitant]
     Active Substance: LACTULOSE
  4. FUROSEMIDE. [Concomitant]
     Active Substance: FUROSEMIDE
  5. SILFAMETHOXAZOLE?TRIMETHROPRIM [Concomitant]
  6. NIVOLUMAB [Concomitant]
     Active Substance: NIVOLUMAB
  7. NIVOLUMAB [Suspect]
     Active Substance: NIVOLUMAB
  8. DIMENHYDRINATE. [Concomitant]
     Active Substance: DIMENHYDRINATE
  9. PANTOPRAZOLE [Concomitant]
     Active Substance: PANTOPRAZOLE

REACTIONS (5)
  - Peritonitis bacterial [None]
  - Confusional state [None]
  - Asthenia [None]
  - Disease progression [None]
  - Acute hepatic failure [None]

NARRATIVE: CASE EVENT DATE: 20180210
